FAERS Safety Report 8831568 (Version 3)
Quarter: 2013Q2

REPORT INFORMATION
  Report Type: Spontaneous
  Country: US (occurrence: US)
  Receive Date: 20121009
  Receipt Date: 20130514
  Transmission Date: 20140414
  Serious: Yes (Hospitalization, Disabling, Other)
  Sender: FDA-Public Use
  Company Number: US-009507513-1210USA002329

PATIENT
  Sex: Female
  Weight: 115.19 kg

DRUGS (1)
  1. NUVARING [Suspect]
     Indication: CONTRACEPTION
     Dosage: UNK, Q 4 WKS
     Route: 067
     Dates: end: 20081003

REACTIONS (6)
  - Hypercoagulation [Unknown]
  - Pulmonary embolism [Unknown]
  - Deep vein thrombosis [Unknown]
  - Maternal exposure before pregnancy [Recovered/Resolved]
  - Female sterilisation [Unknown]
  - Injury [Unknown]
